FAERS Safety Report 6008532-X (Version None)
Quarter: 2008Q4

REPORT INFORMATION
  Report Type: 
  Country: None (occurrence: None)
  Receive Date: 20081217
  Receipt Date: 20081208
  Transmission Date: 20090506
  Serious: Yes (Hospitalization)
  Sender: FDA-Public Use
  Company Number: DE-WATSON-2008-07202

PATIENT
  Age: 60 Year
  Sex: Female

DRUGS (4)
  1. CITALOPRAM HYDROBROMIDE [Suspect]
     Indication: DEPRESSION
     Dosage: 60 MG, UNK
  2. CITALOPRAM HYDROBROMIDE [Suspect]
     Dosage: 40 MG, UNK
  3. CITALOPRAM HYDROBROMIDE [Suspect]
     Dosage: 60 MG, UNK
  4. HEALING EARTH [Suspect]
     Indication: GASTROINTESTINAL DISORDER
     Dosage: UNK

REACTIONS (2)
  - DEPRESSION [None]
  - DRUG INTERACTION [None]
